FAERS Safety Report 13983312 (Version 1)
Quarter: 2017Q3

REPORT INFORMATION
  Report Type: Spontaneous
  Country: US (occurrence: US)
  Receive Date: 20170918
  Receipt Date: 20170918
  Transmission Date: 20171128
  Serious: No
  Sender: FDA-Public Use
  Company Number: US-PFIZER INC-2016442028

PATIENT
  Age: 52 Year
  Sex: Female
  Weight: 96.48 kg

DRUGS (10)
  1. SYNTHROID [Concomitant]
     Active Substance: LEVOTHYROXINE SODIUM
     Dosage: 150 MG, DAILY (PATIENT TAKING DIFFERENTLY: TAKE 1 TABLET 6 DAYS PER WEEK)
     Route: 048
  2. HYDRODIURIL [Concomitant]
     Active Substance: HYDROCHLOROTHIAZIDE
     Dosage: 25 MG, DAILY (EVERYDAY)
     Route: 048
  3. FARXIGA [Concomitant]
     Active Substance: DAPAGLIFLOZIN PROPANEDIOL
     Dosage: 10 MG, DAILY
     Route: 048
  4. MEVACOR [Concomitant]
     Active Substance: LOVASTATIN
     Dosage: 20 MG, DAILY (EVERYDAY)
     Route: 048
  5. ASPIRIN (E.C.) [Concomitant]
     Active Substance: ASPIRIN
     Dosage: 81 MG, DAILY (EVERYDAY)
     Route: 048
  6. GENOTROPIN MQ [Suspect]
     Active Substance: SOMATROPIN
     Indication: GROWTH HORMONE DEFICIENCY
     Dosage: 0.25 ML, DAILY
     Route: 058
     Dates: start: 2017
  7. GLUCOPHAGE XR [Concomitant]
     Active Substance: METFORMIN HYDROCHLORIDE
     Dosage: 1000 MG, 2X/DAY (500 MG,TAKE 2 TABS BY MOUTH TWICE A DAY)
     Route: 048
  8. PRINIVIL [Concomitant]
     Active Substance: LISINOPRIL
     Dosage: 10 MG, DAILY (EVERYDAY)
     Route: 048
  9. GENOTROPIN MQ [Suspect]
     Active Substance: SOMATROPIN
     Indication: HYPOTHALAMO-PITUITARY DISORDER
     Dosage: 0.6 MG, DAILY
     Route: 058
     Dates: start: 2007
  10. VICTOZA [Concomitant]
     Active Substance: LIRAGLUTIDE
     Dosage: 1.8 MG, DAILY (WITH 32 G X 5/32^DISPOSABLE NANO PEN NEEDLES FOR USE WITH  VICTOZA PEN, TAKE 1.8MG)
     Route: 058

REACTIONS (5)
  - Vaginal haemorrhage [Unknown]
  - Paraesthesia [Unknown]
  - Pelvic pain [Unknown]
  - Hypoaesthesia [Unknown]
  - Arthralgia [Unknown]
